FAERS Safety Report 9856438 (Version 10)
Quarter: 2021Q1

REPORT INFORMATION
  Report Type: Spontaneous
  Country: US (occurrence: US)
  Receive Date: 20140130
  Receipt Date: 20210104
  Transmission Date: 20210420
  Serious: Yes (Hospitalization, Other)
  Sender: FDA-Public Use
  Company Number: US-PFIZER INC-2014026152

PATIENT
  Age: 66 Year
  Sex: Male
  Weight: 121.99 kg

DRUGS (24)
  1. PEPCID [Concomitant]
     Active Substance: FAMOTIDINE
     Indication: DYSPEPSIA
  2. LUMIGAN [Concomitant]
     Active Substance: BIMATOPROST
     Dosage: UNK, 1X/DAY
  3. LYRICA [Suspect]
     Active Substance: PREGABALIN
     Dosage: 300 MG, UNK
  4. FUROSEMIDE. [Concomitant]
     Active Substance: FUROSEMIDE
     Indication: DIURETIC THERAPY
     Dosage: 40 MG, 2X/DAY (ONE IN THE MORNING AND ONE IN THE AFTERNOON)
  5. LYRICA [Suspect]
     Active Substance: PREGABALIN
     Dosage: 75 MG, 2X/DAY
     Route: 048
  6. ALLOPURINOL. [Concomitant]
     Active Substance: ALLOPURINOL
     Indication: PROPHYLAXIS
     Dosage: 100 MG, 2X/DAY
     Route: 048
  7. RENVELA [Concomitant]
     Active Substance: SEVELAMER CARBONATE
     Dosage: 800 MG, 3X/DAY
     Route: 048
  8. CARNITOR [Concomitant]
     Active Substance: LEVOCARNITINE
     Dosage: 330 MG, 3X/DAY
     Route: 048
  9. PEPCID [Concomitant]
     Active Substance: FAMOTIDINE
     Indication: GASTRIC ULCER
     Dosage: 20 MG, 1X/DAY (IN THE MORNING)
  10. LYRICA [Suspect]
     Active Substance: PREGABALIN
     Dosage: 150 MG, 2X/DAY
  11. ALLOPURINOL. [Concomitant]
     Active Substance: ALLOPURINOL
     Dosage: 100 MG, (EVERY MORNING)
     Route: 048
  12. ALLOPURINOL. [Concomitant]
     Active Substance: ALLOPURINOL
     Dosage: 200 MG, 1X/DAY
  13. MIDODRINE [Concomitant]
     Active Substance: MIDODRINE
     Dosage: 5 MG, 3X/DAY (1 PRN WITH DIALYSIS)
     Route: 048
  14. ADVIL [Concomitant]
     Active Substance: IBUPROFEN
     Dosage: 200 MG, EVERY 4 HRS
     Route: 048
  15. DAPSONE. [Concomitant]
     Active Substance: DAPSONE
     Indication: BACTERIAL INFECTION
     Dosage: 100 MG, 1X/DAY
  16. PREDNISONE. [Concomitant]
     Active Substance: PREDNISONE
     Dosage: 5 MG, 1X/DAY
  17. MELATONIN [Concomitant]
     Active Substance: MELATONIN
     Dosage: 5 MG, ALTERNATE DAY (EVERY OTHER DAY [TAKE PRE?DIALYSIS])
     Route: 048
  18. PRESERVISION AREDS [Concomitant]
     Active Substance: MINERALS\VITAMINS
     Dosage: 1 DF, 1X/DAY (1 CAPSULE ONCE A DAY; 14, 320?226?200)
     Route: 048
  19. MAGNESIUM OXIDE. [Concomitant]
     Active Substance: MAGNESIUM OXIDE
     Dosage: 250 MG, 2X/DAY
  20. LYRICA [Suspect]
     Active Substance: PREGABALIN
     Indication: NEUROPATHY PERIPHERAL
     Dosage: 25 MG, 1X/DAY
     Route: 048
  21. TYLENOL PM, EXTRA STRENGTH [Concomitant]
     Dosage: 25?500 MG, 3X/DAY
     Route: 048
  22. VALCYTE [Concomitant]
     Active Substance: VALGANCICLOVIR HYDROCHLORIDE
     Indication: VIRAL INFECTION
     Dosage: 450 MG, 1X/DAY (IN THE MORNING)
  23. PROGRAF [Concomitant]
     Active Substance: TACROLIMUS
     Dosage: 2 MG, 2X/DAY
  24. PRESERVISION AREDS 2 [Concomitant]
     Active Substance: MINERALS\VITAMINS
     Dosage: UNK UNK, 2X/DAY

REACTIONS (11)
  - Renal failure [Unknown]
  - Focal segmental glomerulosclerosis [Unknown]
  - Withdrawal syndrome [Unknown]
  - Anaemia [Unknown]
  - End stage renal disease [Unknown]
  - Thinking abnormal [Unknown]
  - Dysgraphia [Unknown]
  - Memory impairment [Unknown]
  - Weight increased [Unknown]
  - Blindness [Unknown]
  - Reading disorder [Unknown]
